FAERS Safety Report 11275503 (Version 4)
Quarter: 2015Q3

REPORT INFORMATION
  Report Type: Spontaneous
  Country: US (occurrence: US)
  Receive Date: 20150716
  Receipt Date: 20150930
  Transmission Date: 20151125
  Serious: Yes (Hospitalization)
  Sender: FDA-Public Use
  Company Number: US-JNJFOC-20150706307

PATIENT
  Sex: Female
  Weight: 70.31 kg

DRUGS (10)
  1. INVOKANA [Suspect]
     Active Substance: CANAGLIFLOZIN
     Indication: LATENT AUTOIMMUNE DIABETES IN ADULTS
     Route: 048
     Dates: start: 20140217, end: 20140326
  2. VICTOZA [Concomitant]
     Active Substance: LIRAGLUTIDE
     Indication: TYPE 2 DIABETES MELLITUS
     Dosage: EVERY MORNING
     Route: 058
     Dates: start: 20130204, end: 20140326
  3. SIMVASTATIN. [Concomitant]
     Active Substance: SIMVASTATIN
     Indication: BLOOD CHOLESTEROL INCREASED
     Dosage: AT BEDTIME
     Route: 065
  4. VITAMIN D3 [Concomitant]
     Active Substance: CHOLECALCIFEROL
     Indication: VITAMIN D DEFICIENCY
     Route: 065
  5. FERROUS SULFATE [Concomitant]
     Active Substance: FERROUS SULFATE\FERROUS SULFATE, DRIED
     Indication: IRON DEFICIENCY ANAEMIA
     Route: 065
  6. LANTUS [Concomitant]
     Active Substance: INSULIN GLARGINE
     Indication: DIABETES MELLITUS
     Dosage: 18 UNITS IN THE MORNING AND 14 UNITS AT NIGHT
     Route: 065
  7. METFORMIN [Concomitant]
     Active Substance: METFORMIN HYDROCHLORIDE
     Indication: DIABETES MELLITUS
     Route: 048
  8. ASPIRIN. [Concomitant]
     Active Substance: ASPIRIN
     Indication: PROPHYLAXIS
     Route: 065
  9. ASPART INSULIN [Concomitant]
     Indication: DIABETES MELLITUS
     Dosage: DOSE: 3-10 UNITS; BEFORE MEALTIME
     Route: 065
  10. LISINOPRIL. [Concomitant]
     Active Substance: LISINOPRIL
     Route: 065

REACTIONS (3)
  - Diabetic ketoacidosis [Recovered/Resolved]
  - Influenza [Recovered/Resolved]
  - Product use issue [Unknown]
